FAERS Safety Report 7129859-4 (Version None)
Quarter: 2010Q4

REPORT INFORMATION
  Report Type: 
  Country: None (occurrence: None)
  Receive Date: 20101130
  Receipt Date: 20100927
  Transmission Date: 20110411
  Serious: Yes (Other)
  Sender: FDA-Public Use
  Company Number: US-AMGEN-QUU441372

PATIENT

DRUGS (3)
  1. NPLATE [Suspect]
     Indication: IDIOPATHIC THROMBOCYTOPENIC PURPURA
     Dosage: 10 A?G/KG, UNK
     Dates: start: 20080909, end: 20081129
  2. CORTICOSTEROID NOS [Concomitant]
     Dosage: UNK UNK, UNK
     Dates: start: 20080701
  3. DANAZOL [Concomitant]
     Dosage: UNK UNK, UNK
     Dates: start: 20090115

REACTIONS (2)
  - DRUG INEFFECTIVE [None]
  - NORMOCHROMIC NORMOCYTIC ANAEMIA [None]
